FAERS Safety Report 7939304-4 (Version None)
Quarter: 2011Q4

REPORT INFORMATION
  Report Type: 
  Country: None (occurrence: None)
  Receive Date: 20111125
  Receipt Date: 20110331
  Transmission Date: 20120403
  Serious: No
  Sender: FDA-Public Use
  Company Number: US-BAYER-2011-077660

PATIENT
  Age: 65 Year
  Sex: Female

DRUGS (1)
  1. SARGRAMOSTIM [Suspect]
     Indication: BREAST CANCER
     Dosage: UNK
     Dates: start: 20110331

REACTIONS (3)
  - VOMITING [None]
  - CHILLS [None]
  - TREMOR [None]
